FAERS Safety Report 13374729 (Version 1)
Quarter: 2017Q1

REPORT INFORMATION
  Report Type: Spontaneous
  Country: US (occurrence: US)
  Receive Date: 20170327
  Receipt Date: 20170327
  Transmission Date: 20170429
  Serious: Yes (Other)
  Sender: FDA-Public Use
  Company Number: US-BAYER-2017-056416

PATIENT
  Sex: Female

DRUGS (1)
  1. MIRENA [Suspect]
     Active Substance: LEVONORGESTREL
     Indication: CONTRACEPTION
     Dosage: 20 MCG/24HR, CONT
     Route: 015
     Dates: start: 20160715

REACTIONS (7)
  - Vomiting [None]
  - Nausea [None]
  - Hypersomnia [None]
  - Amenorrhoea [None]
  - Vaginal haemorrhage [Recovered/Resolved]
  - Abdominal pain upper [None]
  - Pregnancy with contraceptive device [None]
